FAERS Safety Report 23673983 (Version 2)
Quarter: 2024Q1

REPORT INFORMATION
  Report Type: Report from Study
  Country: DE (occurrence: DE)
  Receive Date: 20240326
  Receipt Date: 20240330
  Transmission Date: 20240410
  Serious: Yes (Death, Hospitalization, Other)
  Sender: FDA-Public Use
  Company Number: DE-ABBVIE-5689606

PATIENT
  Sex: Female

DRUGS (2)
  1. CARBIDOPA\LEVODOPA [Suspect]
     Active Substance: CARBIDOPA\LEVODOPA
     Indication: Parkinson^s disease
     Dosage: MD: 4.5ML; CRD: 2.4ML/H; ED: 1.0ML
     Route: 050
     Dates: start: 20190319
  2. CARBIDOPA\LEVODOPA [Suspect]
     Active Substance: CARBIDOPA\LEVODOPA

REACTIONS (4)
  - Pneumonia [Fatal]
  - Asphyxia [Unknown]
  - Productive cough [Unknown]
  - Coma [Fatal]

NARRATIVE: CASE EVENT DATE: 20240101
